FAERS Safety Report 25041475 (Version 3)
Quarter: 2025Q1

REPORT INFORMATION
  Report Type: Spontaneous
  Country: ES (occurrence: ES)
  Receive Date: 20250305
  Receipt Date: 20250313
  Transmission Date: 20250409
  Serious: Yes (Other)
  Sender: PFIZER
  Company Number: ES-MLMSERVICE-20250224-PI428037-00202-1

PATIENT
  Age: 7 Decade
  Sex: Male

DRUGS (12)
  1. LINEZOLID [Suspect]
     Active Substance: LINEZOLID
     Indication: Nocardiosis
     Dosage: 600 MG/12 HOURS
     Route: 048
     Dates: start: 20240420
  2. LINEZOLID [Suspect]
     Active Substance: LINEZOLID
     Dosage: 600 MG/24 HOURS
     Route: 048
     Dates: start: 20240516
  3. LINEZOLID [Suspect]
     Active Substance: LINEZOLID
     Dosage: 300 MG/12 HOURS
     Route: 048
     Dates: start: 20240524
  4. LINEZOLID [Suspect]
     Active Substance: LINEZOLID
     Dosage: 600 MG/24 HOURS
     Route: 048
     Dates: start: 20240808
  5. OMEPRAZOLE [Concomitant]
     Active Substance: OMEPRAZOLE
     Dosage: 20 MG (1-0-0)
  6. POLYETHYLENE GLYCOLS [Concomitant]
     Active Substance: POLYETHYLENE GLYCOLS
     Indication: Constipation
  7. APIXABAN [Concomitant]
     Active Substance: APIXABAN
     Dosage: 5 MG (1-0-1)
  8. ALPRAZOLAM [Concomitant]
     Active Substance: ALPRAZOLAM
     Dosage: 0.5 MG (1-0-1)
  9. TAMSULOSIN [Concomitant]
     Active Substance: TAMSULOSIN
     Dosage: 0.4 MG (0-0-1)
  10. QUETIAPINE [Concomitant]
     Active Substance: QUETIAPINE
     Indication: Depression
     Dates: start: 2024
  11. SULFAMETHOXAZOLE\TRIMETHOPRIM [Concomitant]
     Active Substance: SULFAMETHOXAZOLE\TRIMETHOPRIM
     Route: 048
     Dates: start: 2024, end: 202404
  12. PEMBROLIZUMAB [Concomitant]
     Active Substance: PEMBROLIZUMAB
     Indication: Lung adenocarcinoma
     Dates: start: 2024

REACTIONS (4)
  - Drug level increased [Recovering/Resolving]
  - Thrombocytopenia [Recovering/Resolving]
  - Haemoglobin decreased [Recovering/Resolving]
  - Off label use [Unknown]

NARRATIVE: CASE EVENT DATE: 20240420
